FAERS Safety Report 20129707 (Version 1)
Quarter: 2021Q4

REPORT INFORMATION
  Report Type: Spontaneous
  Country: IT (occurrence: IT)
  Receive Date: 20211130
  Receipt Date: 20211130
  Transmission Date: 20220303
  Serious: Yes (Hospitalization)
  Sender: FDA-Public Use
  Company Number: None

PATIENT
  Age: 18 Year
  Sex: Female

DRUGS (1)
  1. ALPRAZOLAM [Suspect]
     Active Substance: ALPRAZOLAM
     Indication: Intentional self-injury
     Dosage: 100 GTT DROPS, ONCE
     Route: 048
     Dates: start: 20210519, end: 20210519

REACTIONS (2)
  - Psychomotor skills impaired [Unknown]
  - Substance abuse [Unknown]

NARRATIVE: CASE EVENT DATE: 20210519
